FAERS Safety Report 10858019 (Version 2)
Quarter: 2015Q1

REPORT INFORMATION
  Report Type: Report from Study
  Country: US (occurrence: US)
  Receive Date: 20150223
  Receipt Date: 20150305
  Transmission Date: 20150721
  Serious: Yes (Hospitalization, Other)
  Sender: FDA-Public Use
  Company Number: US-GLAXOSMITHKLINE-US2015GSK022188

PATIENT
  Age: 75 Year
  Sex: Female
  Weight: 85 kg

DRUGS (21)
  1. IBUPROFEN. [Concomitant]
     Active Substance: IBUPROFEN
  2. PHENERGAN [Concomitant]
     Active Substance: PROMETHAZINE HYDROCHLORIDE
  3. HYDROCODONE [Concomitant]
     Active Substance: HYDROCODONE
  4. LYRICA [Concomitant]
     Active Substance: PREGABALIN
  5. PREDNISONE. [Concomitant]
     Active Substance: PREDNISONE
  6. HUMALOG [Concomitant]
     Active Substance: INSULIN LISPRO
  7. LANTUS [Concomitant]
     Active Substance: INSULIN GLARGINE
  8. LISINOPRIL. [Concomitant]
     Active Substance: LISINOPRIL
  9. UREA HYDROGEN PEROXIDE [Concomitant]
  10. DABRAFENIB [Suspect]
     Active Substance: DABRAFENIB
     Indication: PAPILLARY THYROID CANCER
     Dosage: 100 MG, BID
     Route: 065
     Dates: start: 20140306
  11. PROMETHAZINE [Concomitant]
     Active Substance: PROMETHAZINE\PROMETHAZINE HYDROCHLORIDE
  12. POTASSIUM [Concomitant]
     Active Substance: POTASSIUM
  13. CALCITRIOL. [Concomitant]
     Active Substance: CALCITRIOL
  14. CRANBERRY EXTRACT [Concomitant]
  15. MORPHINE SULFATE ER [Concomitant]
     Active Substance: MORPHINE SULFATE
  16. PAXIL [Concomitant]
     Active Substance: PAROXETINE HYDROCHLORIDE
  17. TRAMETINIB [Suspect]
     Active Substance: TRAMETINIB
     Indication: PAPILLARY THYROID CANCER
     Dosage: 1.5 MG, QD
     Route: 065
     Dates: start: 20140306
  18. ASPIRIN + CAFFEINE + SALICYLAMIDE [Concomitant]
  19. CALTRATE [Concomitant]
     Active Substance: CALCIUM CARBONATE
  20. PROTONIX [Concomitant]
     Active Substance: PANTOPRAZOLE SODIUM
  21. SYNTHROID [Concomitant]
     Active Substance: LEVOTHYROXINE SODIUM

REACTIONS (2)
  - Pyrexia [Recovered/Resolved]
  - Depressed level of consciousness [Recovered/Resolved]

NARRATIVE: CASE EVENT DATE: 20150216
